FAERS Safety Report 9957682 (Version 1)
Quarter: 2014Q1

REPORT INFORMATION
  Report Type: Spontaneous
  Country: US (occurrence: US)
  Receive Date: 20140304
  Receipt Date: 20140304
  Transmission Date: 20141002
  Serious: No
  Sender: FDA-Public Use
  Company Number: US-ABBVIE-13P-163-1093468-00

PATIENT
  Age: 28 Year
  Sex: Female

DRUGS (2)
  1. HUMIRA [Suspect]
     Indication: PRODUCT USED FOR UNKNOWN INDICATION
  2. CONTRACEPTIVES [Concomitant]
     Indication: CONTRACEPTION
     Dates: start: 201305

REACTIONS (2)
  - Pregnancy test false positive [Unknown]
  - Urinary tract infection [Unknown]
